FAERS Safety Report 21251867 (Version 2)
Quarter: 2022Q4

REPORT INFORMATION
  Report Type: Spontaneous
  Country: FR (occurrence: FR)
  Receive Date: 20220825
  Receipt Date: 20221215
  Transmission Date: 20230112
  Serious: Yes (Other)
  Sender: FDA-Public Use
  Company Number: None

PATIENT
  Age: 54 Year
  Sex: Male
  Weight: 110 kg

DRUGS (4)
  1. PRAVASTATIN SODIUM [Suspect]
     Active Substance: PRAVASTATIN SODIUM
     Indication: Cardiovascular event prophylaxis
     Dosage: UNIT DOSE: 1 DF, FREQUENCY TIME : 1 DAY
     Route: 065
  2. AMISULPRIDE [Suspect]
     Active Substance: AMISULPRIDE
     Indication: Product used for unknown indication
     Dosage: SOLIAN 400 MG, SCORED FILM-COATED TABLET, UNIT DOSE: 400 MG, THERAPY END DATE : NASK
     Dates: start: 1992
  3. INNOVAIR [Concomitant]
     Active Substance: BECLOMETHASONE DIPROPIONATE\FORMOTEROL
     Indication: Chronic obstructive pulmonary disease
  4. PANTOPRAZOLE [Concomitant]
     Active Substance: PANTOPRAZOLE
     Indication: Prophylaxis against gastrointestinal ulcer

REACTIONS (1)
  - Pleurisy [Not Recovered/Not Resolved]

NARRATIVE: CASE EVENT DATE: 20220502
